FAERS Safety Report 14689683 (Version 1)
Quarter: 2018Q1

REPORT INFORMATION
  Report Type: Spontaneous
  Country: JP (occurrence: JP)
  Receive Date: 20180328
  Receipt Date: 20180328
  Transmission Date: 20180509
  Serious: Yes (Other)
  Sender: FDA-Public Use
  Company Number: JP-PFIZER INC-2018123106

PATIENT
  Age: 88 Year
  Sex: Male

DRUGS (4)
  1. CALONAL [Suspect]
     Active Substance: ACETAMINOPHEN
     Route: 048
  2. LYRICA [Suspect]
     Active Substance: PREGABALIN
     Dosage: UNK
     Route: 048
  3. LYRICA [Suspect]
     Active Substance: PREGABALIN
     Route: 048
  4. TRAMCET [Suspect]
     Active Substance: ACETAMINOPHEN\TRAMADOL
     Route: 048

REACTIONS (4)
  - Pain [Unknown]
  - Condition aggravated [Unknown]
  - Foot fracture [Unknown]
  - Musculoskeletal stiffness [Unknown]
